FAERS Safety Report 18390652 (Version 1)
Quarter: 2020Q4

REPORT INFORMATION
  Report Type: Report from Study
  Country: RO (occurrence: RO)
  Receive Date: 20201016
  Receipt Date: 20201016
  Transmission Date: 20210114
  Serious: Yes (Hospitalization)
  Sender: FDA-Public Use
  Company Number: RO-GILEAD-2020-0498715

PATIENT
  Age: 72 Year
  Sex: Female

DRUGS (8)
  1. LEDIPASVIR/SOFOSBUVIR [Suspect]
     Active Substance: LEDIPASVIR\SOFOSBUVIR
     Indication: CHRONIC HEPATITIS C
     Dosage: 1 DOSAGE FORM, QD
     Route: 048
     Dates: start: 20200814, end: 20201009
  2. NEBILET [Concomitant]
     Active Substance: NEBIVOLOL
  3. ATACAND [Concomitant]
     Active Substance: CANDESARTAN CILEXETIL
  4. BETASERC [Concomitant]
     Active Substance: BETAHISTINE
  5. TENAXUM [Concomitant]
     Active Substance: RILMENIDINE
  6. LERIDIP [Concomitant]
  7. DIUREX [PAMABROM] [Concomitant]
  8. BILOBIL [Concomitant]
     Active Substance: GINKGO

REACTIONS (6)
  - Headache [Not Recovered/Not Resolved]
  - Dysuria [Not Recovered/Not Resolved]
  - Insomnia [Not Recovered/Not Resolved]
  - Blood pressure abnormal [Not Recovered/Not Resolved]
  - Urine output decreased [Not Recovered/Not Resolved]
  - Head discomfort [Not Recovered/Not Resolved]

NARRATIVE: CASE EVENT DATE: 20200929
